FAERS Safety Report 6103059-9 (Version None)
Quarter: 2009Q1

REPORT INFORMATION
  Report Type: 
  Country: None (occurrence: None)
  Receive Date: 20090305
  Receipt Date: 20090227
  Transmission Date: 20090719
  Serious: Yes (Death)
  Sender: FDA-Public Use
  Company Number: RU-JNJFOC-20090206643

PATIENT
  Sex: Male
  Weight: 61 kg

DRUGS (6)
  1. INVEGA [Suspect]
     Indication: SCHIZOPHRENIA
     Route: 048
  2. ATARAX [Concomitant]
  3. ATARAX [Concomitant]
     Indication: ANXIETY
  4. LORAFEN [Concomitant]
  5. LORAFEN [Concomitant]
     Indication: ANXIETY
  6. PAXIL [Concomitant]
     Indication: ANXIETY

REACTIONS (1)
  - COMPLETED SUICIDE [None]
